FAERS Safety Report 4543116-1 (Version None)
Quarter: 2005Q1

REPORT INFORMATION
  Report Type: 
  Country: None (occurrence: None)
  Receive Date: 20050103
  Receipt Date: 20041215
  Transmission Date: 20050727
  Serious: Yes (Other)
  Sender: FDA-Public Use
  Company Number: US-NOVOPROD-241128

PATIENT
  Age: 10 Year
  Sex: Male
  Weight: 48 kg

DRUGS (2)
  1. NOVOLOG [Suspect]
     Indication: DIABETES MELLITUS INSULIN-DEPENDENT
     Dosage: UNK, SINGLE
     Route: 058
     Dates: start: 20040901
  2. LANTUS [Concomitant]
     Indication: DIABETES MELLITUS INSULIN-DEPENDENT
     Route: 058
     Dates: start: 20040901

REACTIONS (3)
  - CONVULSION [None]
  - EYE ROLLING [None]
  - NERVOUSNESS [None]
